FAERS Safety Report 14988080 (Version 2)
Quarter: 2019Q2

REPORT INFORMATION
  Report Type: Spontaneous
  Country: US (occurrence: US)
  Receive Date: 20180608
  Receipt Date: 20190510
  Transmission Date: 20190711
  Serious: Yes (Hospitalization)
  Sender: FDA-Public Use
  Company Number: US-PFIZER INC-2018231759

PATIENT
  Age: 68 Year
  Sex: Male

DRUGS (2)
  1. VFEND [Suspect]
     Active Substance: VORICONAZOLE
     Dosage: 300 MG, 2X/DAY (2, 50MG AND A 200MG BY MOUTH TWICE DAILY)
     Dates: start: 201412, end: 201601
  2. VFEND [Suspect]
     Active Substance: VORICONAZOLE
     Indication: ASPERGILLUS INFECTION
     Dosage: 300 MG, 2X/DAY (2, 50MG AND A 200MG BY MOUTH TWICE DAILY)
     Dates: start: 201412, end: 201601

REACTIONS (6)
  - Lacrimation increased [Unknown]
  - Eye swelling [Unknown]
  - Off label use [Unknown]
  - Aspergillus infection [Not Recovered/Not Resolved]
  - Burning sensation [Unknown]
  - Disease recurrence [Not Recovered/Not Resolved]

NARRATIVE: CASE EVENT DATE: 201412
